FAERS Safety Report 7150301-1 (Version None)
Quarter: 2010Q4

REPORT INFORMATION
  Report Type: 
  Country: None (occurrence: None)
  Receive Date: 20101210
  Receipt Date: 20101129
  Transmission Date: 20110411
  Serious: Yes (Hospitalization)
  Sender: FDA-Public Use
  Company Number: JP-JNJFOC-20101106870

PATIENT
  Sex: Female
  Weight: 55 kg

DRUGS (8)
  1. GOLIMUMAB [Suspect]
     Indication: RHEUMATOID ARTHRITIS
     Route: 058
  2. PLACEBO [Suspect]
     Indication: RHEUMATOID ARTHRITIS
  3. MOHRUS TAPE [Concomitant]
     Indication: BACK PAIN
     Route: 062
  4. MOHRUS TAPE [Concomitant]
     Indication: RHEUMATOID ARTHRITIS
     Route: 062
  5. PREDNISOLONE [Concomitant]
     Indication: RHEUMATOID ARTHRITIS
     Route: 048
  6. GLICLAZIDE [Concomitant]
     Indication: DIABETES MELLITUS
     Route: 048
  7. LIPITOR [Concomitant]
     Indication: HYPERLIPIDAEMIA
     Route: 048
  8. AMLODIN OD [Concomitant]
     Indication: HYPERTENSION
     Route: 048

REACTIONS (1)
  - OVARIAN NEOPLASM [None]
